FAERS Safety Report 13431099 (Version 7)
Quarter: 2019Q2

REPORT INFORMATION
  Report Type: Spontaneous
  Country: US (occurrence: US)
  Receive Date: 20170412
  Receipt Date: 20190626
  Transmission Date: 20190711
  Serious: Yes (Hospitalization, Disabling, Other)
  Sender: FDA-Public Use
  Company Number: US-PFIZER INC-2017155451

PATIENT
  Age: 46 Year
  Sex: Female
  Weight: 59.86 kg

DRUGS (14)
  1. LYRICA [Suspect]
     Active Substance: PREGABALIN
     Dosage: 200 MG, 3X/DAY
     Route: 048
     Dates: start: 20190425
  2. PROZAC [Concomitant]
     Active Substance: FLUOXETINE HYDROCHLORIDE
     Indication: ANTIDEPRESSANT THERAPY
     Dosage: 20 MG, DAILY
  3. LYRICA [Suspect]
     Active Substance: PREGABALIN
     Dosage: UNK, DAILY (TAKE ONLY ONE OR TWO CAPSULES)
  4. LYRICA [Suspect]
     Active Substance: PREGABALIN
     Indication: FIBROMYALGIA
     Dosage: 200 MG, TWO TO THREE CAPSULES A DAY
     Route: 048
     Dates: start: 2004
  5. LYRICA [Suspect]
     Active Substance: PREGABALIN
     Dosage: 200 MG, 3X/DAY
     Dates: start: 2009
  6. AMLODIPINE [Concomitant]
     Active Substance: AMLODIPINE BESYLATE
     Dosage: 2.5 MG, DAILY
  7. XANAX [Concomitant]
     Active Substance: ALPRAZOLAM
     Indication: DYSPNOEA
     Dosage: 1 DF, 3X/DAY
  8. ZANTAC [Concomitant]
     Active Substance: RANITIDINE HYDROCHLORIDE
     Dosage: 150 MG, 1X/DAY
  9. LYRICA [Suspect]
     Active Substance: PREGABALIN
     Dosage: 200MG AS NEEDED (ANYWHERE BETWEEN 1-3 TIMES A DAY)
     Route: 048
     Dates: start: 2019
  10. FLONASE [Concomitant]
     Active Substance: FLUTICASONE PROPIONATE
     Dosage: 4 DF, DAILY (2 SPRAYS EACH NOSTRIL DAILY)
     Route: 045
  11. LYRICA [Suspect]
     Active Substance: PREGABALIN
     Dosage: UNK, 4X/DAY
     Dates: start: 2005
  12. LYRICA [Suspect]
     Active Substance: PREGABALIN
     Dosage: 200 MG, 3X/DAY
     Route: 048
     Dates: start: 20190109
  13. LYRICA [Suspect]
     Active Substance: PREGABALIN
     Dosage: 200 MG, AS NEEDED (3 X AS NEEDED)
  14. ALBUTEROL HFA [Concomitant]
     Active Substance: ALBUTEROL SULFATE
     Dosage: UNK UNK, AS NEEDED (2.5 NEBULIZER SOLUTION HFA 90 MCG AS NEEDED)
     Route: 045

REACTIONS (6)
  - Oxygen saturation decreased [Not Recovered/Not Resolved]
  - Product use issue [Unknown]
  - Intentional product use issue [Unknown]
  - Lower respiratory tract infection bacterial [Recovered/Resolved]
  - Off label use [Unknown]
  - Chronic obstructive pulmonary disease [Not Recovered/Not Resolved]

NARRATIVE: CASE EVENT DATE: 2004
